FAERS Safety Report 8993350 (Version 3)
Quarter: 2013Q2

REPORT INFORMATION
  Report Type: Spontaneous
  Country: JP (occurrence: JP)
  Receive Date: 20130102
  Receipt Date: 20130409
  Transmission Date: 20140414
  Serious: Yes (Other)
  Sender: FDA-Public Use
  Company Number: JP-OTSUKA-JP-2012-17277

PATIENT
  Age: 86 Year
  Sex: Female

DRUGS (17)
  1. SAMSCA [Suspect]
     Indication: CARDIAC FAILURE CHRONIC
     Dosage: 3.75 MG MILLIGRAM(S), QAM
     Route: 048
     Dates: start: 20121220, end: 20121220
  2. SAMSCA [Suspect]
     Indication: HYPONATRAEMIA
  3. HANP [Concomitant]
     Indication: CARDIAC FAILURE
     Dosage: 0.025 UG/KG/MIN, DAILY DOSE
     Route: 042
     Dates: start: 20121211
  4. DOBUTREX [Concomitant]
     Indication: CARDIAC FAILURE
     Dosage: 2.5 UG/KG/MIN, DAILY DOSE
     Route: 042
     Dates: start: 20121211
  5. COVERSYL [Concomitant]
     Indication: HYPERTENSION
     Dosage: 2 MG MILLIGRAM(S), BID
     Route: 048
  6. COVERSYL [Concomitant]
     Indication: CARDIAC FAILURE
  7. ARTIST [Concomitant]
     Indication: HYPERTENSION
     Dosage: 5 MG MILLIGRAM(S), BID
     Route: 048
  8. ARTIST [Concomitant]
     Indication: CARDIAC FAILURE
  9. DIOVAN [Concomitant]
     Indication: HYPERTENSION
     Dosage: 40 MG MILLIGRAM(S), BID
     Route: 048
  10. DIOVAN [Concomitant]
     Indication: CARDIAC FAILURE
  11. SELARA [Concomitant]
     Indication: HYPERTENSION
     Dosage: 25 MG MILLIGRAM(S), QD
     Route: 048
  12. SELARA [Concomitant]
     Indication: CARDIAC FAILURE
  13. OMEPRAL [Concomitant]
     Indication: GASTRITIS
     Dosage: 20 MG MILLIGRAM(S), QD
     Route: 048
  14. FERROMIA [Concomitant]
     Indication: IRON DEFICIENCY ANAEMIA
     Dosage: 50 MG MILLIGRAM(S), BID
     Route: 048
  15. JANUVIA [Concomitant]
     Indication: DIABETES MELLITUS
     Dosage: 50 MG MILLIGRAM(S), QD
     Route: 048
  16. PURSENNID [Concomitant]
     Indication: CONSTIPATION
     Dosage: 24 MG MILLIGRAM(S), QD
     Route: 048
  17. AMOBAN [Concomitant]
     Indication: INSOMNIA
     Dosage: 7.5 MG MILLIGRAM(S), QD
     Route: 048

REACTIONS (2)
  - Anaphylactic shock [Recovered/Resolved]
  - Rash generalised [Recovering/Resolving]
